FAERS Safety Report 14969735 (Version 1)
Quarter: 2018Q2

REPORT INFORMATION
  Report Type: Spontaneous
  Country: US (occurrence: US)
  Receive Date: 20180512
  Receipt Date: 20180512
  Transmission Date: 20180711
  Serious: Yes (Other)
  Sender: FDA-Public Use
  Company Number: None

PATIENT
  Age: 35 Year
  Sex: Female
  Weight: 63 kg

DRUGS (1)
  1. TRINTELLIX [Suspect]
     Active Substance: VORTIOXETINE HYDROBROMIDE
     Indication: DEPRESSION
     Route: 048
     Dates: start: 20180322, end: 20180504

REACTIONS (5)
  - Agitation [None]
  - Anxiety [None]
  - Palpitations [None]
  - Diarrhoea [None]
  - Hypertension [None]

NARRATIVE: CASE EVENT DATE: 20180430
